FAERS Safety Report 5636111-2 (Version None)
Quarter: 2008Q1

REPORT INFORMATION
  Report Type: 
  Country: None (occurrence: None)
  Receive Date: 20080220
  Receipt Date: 20080220
  Transmission Date: 20080703
  Serious: No
  Sender: FDA-Public Use
  Company Number: None

PATIENT
  Age: 70 Year
  Sex: Female
  Weight: 68.0396 kg

DRUGS (1)
  1. LYRICA [Suspect]
     Indication: HERPES ZOSTER
     Dosage: 100 MG - 75 MG - 50 MG ONCE IR TWICE A DA PO
     Route: 048
     Dates: start: 20071001, end: 20080215

REACTIONS (1)
  - ANORGASMIA [None]
